FAERS Safety Report 5164341-5 (Version None)
Quarter: 2006Q4

REPORT INFORMATION
  Report Type: 
  Country: None (occurrence: None)
  Receive Date: 20061127
  Receipt Date: 20061127
  Transmission Date: 20070319
  Serious: Yes (Hospitalization)
  Sender: FDA-Public Use
  Company Number: None

PATIENT
  Sex: Male
  Weight: 53.9 kg

DRUGS (1)
  1. LISINOPRIL [Suspect]
     Indication: HYPERTENSION
     Dosage: 40 MG QD PO
     Route: 048

REACTIONS (5)
  - ERYTHEMA [None]
  - LIP SWELLING [None]
  - MUCOUS MEMBRANE DISORDER [None]
  - OEDEMA MUCOSAL [None]
  - SWELLING FACE [None]
